FAERS Safety Report 17569140 (Version 1)
Quarter: 2020Q1

REPORT INFORMATION
  Report Type: Spontaneous
  Country: US (occurrence: US)
  Receive Date: 20200322
  Receipt Date: 20200322
  Transmission Date: 20200409
  Serious: No
  Sender: FDA-Public Use
  Company Number: US-009507513-2003USA006782

PATIENT
  Age: 34 Year
  Sex: Female
  Weight: 120.2 kg

DRUGS (3)
  1. ZYPREXA [Concomitant]
     Active Substance: OLANZAPINE
     Dosage: UNK
  2. SIMETHICONE (DIMETHICONE) [Concomitant]
     Active Substance: DIMETHICONE
     Dosage: UNK
  3. NEXPLANON [Suspect]
     Active Substance: ETONOGESTREL
     Indication: CONTRACEPTION
     Dosage: IMPLANT
     Route: 059
     Dates: start: 20200310

REACTIONS (2)
  - Exposure during pregnancy [Unknown]
  - Complication associated with device [Not Recovered/Not Resolved]

NARRATIVE: CASE EVENT DATE: 20200311
